FAERS Safety Report 8385049-9 (Version None)
Quarter: 2012Q2

REPORT INFORMATION
  Report Type: 
  Country: None (occurrence: None)
  Receive Date: 20120524
  Receipt Date: 20120522
  Transmission Date: 20120825
  Serious: Yes (Hospitalization)
  Sender: FDA-Public Use
  Company Number: FR-MERCK-1205USA02501

PATIENT
  Age: 64 Year
  Sex: Male

DRUGS (5)
  1. JANUMET [Suspect]
     Route: 048
     Dates: start: 20111001, end: 20120408
  2. GLYBURIDE [Concomitant]
     Route: 065
     Dates: end: 20120408
  3. RASILEZ [Concomitant]
     Route: 065
  4. BRONCHODUAL [Concomitant]
     Route: 065
  5. CATAPRES [Concomitant]
     Route: 065

REACTIONS (3)
  - AMYLASE INCREASED [None]
  - PANCREATITIS ACUTE [None]
  - LIPASE INCREASED [None]
